FAERS Safety Report 5120824-5 (Version None)
Quarter: 2006Q4

REPORT INFORMATION
  Report Type: 
  Country: None (occurrence: None)
  Receive Date: 20061005
  Receipt Date: 20060221
  Transmission Date: 20070319
  Serious: Yes (Other)
  Sender: FDA-Public Use
  Company Number: US-BAYER-200611014BWH

PATIENT
  Age: 75 Year
  Sex: Female

DRUGS (1)
  1. NEXAVAR [Suspect]
     Indication: RENAL CELL CARCINOMA STAGE UNSPECIFIED
     Dosage: TOTAL DAILY DOSE: 400 MG  UNIT DOSE: 200 MG
     Route: 048
     Dates: start: 20060201, end: 20060630

REACTIONS (5)
  - ASTHENIA [None]
  - HYPOGLYCAEMIA [None]
  - METASTATIC RENAL CELL CARCINOMA [None]
  - PAIN IN EXTREMITY [None]
  - RASH [None]
